FAERS Safety Report 13737928 (Version 2)
Quarter: 2017Q3

REPORT INFORMATION
  Report Type: Spontaneous
  Country: US (occurrence: US)
  Receive Date: 20170710
  Receipt Date: 20170712
  Transmission Date: 20171127
  Serious: Yes (Disabling)
  Sender: FDA-Public Use
  Company Number: US-ELI_LILLY_AND_COMPANY-US201607012565

PATIENT

DRUGS (16)
  1. CYMBALTA [Suspect]
     Active Substance: DULOXETINE HYDROCHLORIDE
     Indication: PERSISTENT DEPRESSIVE DISORDER
     Dosage: 60 MG, UNKNOWN
     Route: 065
  2. GABAPENTIN. [Concomitant]
     Active Substance: GABAPENTIN
     Dosage: UNK, UNKNOWN
     Route: 065
  3. CLONAZEPAM. [Concomitant]
     Active Substance: CLONAZEPAM
     Dosage: 0.5 MG, BID
     Route: 065
  4. CYMBALTA [Suspect]
     Active Substance: DULOXETINE HYDROCHLORIDE
     Indication: DEPRESSION
     Dosage: 60 MG, DAILY
     Route: 065
  5. AMITRIPTYLINE [Suspect]
     Active Substance: AMITRIPTYLINE
     Indication: PAIN
     Dosage: UNK, UNKNOWN
     Route: 065
  6. OXYCODONE [Concomitant]
     Active Substance: OXYCODONE
     Dosage: UNK, UNKNOWN
     Route: 065
  7. NAMENDA [Concomitant]
     Active Substance: MEMANTINE HYDROCHLORIDE
     Dosage: UNK, UNKNOWN
     Route: 065
  8. CYMBALTA [Suspect]
     Active Substance: DULOXETINE HYDROCHLORIDE
     Indication: PERSISTENT DEPRESSIVE DISORDER
     Dosage: 30 MG, DAILY
     Route: 065
     Dates: end: 20140919
  9. CYMBALTA [Suspect]
     Active Substance: DULOXETINE HYDROCHLORIDE
     Indication: DEPRESSION
     Dosage: UNK, UNKNOWN
     Route: 065
  10. CYMBALTA [Suspect]
     Active Substance: DULOXETINE HYDROCHLORIDE
     Dosage: 30 MG, EACH MORNING
     Route: 065
     Dates: start: 20160310
  11. CYMBALTA [Suspect]
     Active Substance: DULOXETINE HYDROCHLORIDE
     Indication: PAIN
     Dosage: 60 MG, BID
     Route: 065
     Dates: start: 20140919
  12. CYMBALTA [Suspect]
     Active Substance: DULOXETINE HYDROCHLORIDE
     Dosage: 60 MG, BID
     Route: 065
  13. AMITRIPTYLINE [Suspect]
     Active Substance: AMITRIPTYLINE
     Dosage: UNK, UNKNOWN
     Route: 065
  14. TIZANIDINE. [Concomitant]
     Active Substance: TIZANIDINE
     Dosage: UNK, UNKNOWN
     Route: 065
  15. CYMBALTA [Suspect]
     Active Substance: DULOXETINE HYDROCHLORIDE
     Indication: PAIN
     Dosage: 30 MG, DAILY
     Route: 065
  16. CYMBALTA [Suspect]
     Active Substance: DULOXETINE HYDROCHLORIDE
     Dosage: 60 MG, AT BED TIME
     Route: 065

REACTIONS (33)
  - Obsessive thoughts [Unknown]
  - Apathy [Unknown]
  - Aggression [Unknown]
  - Paraesthesia [Unknown]
  - Pain [Unknown]
  - Asthenia [Unknown]
  - Anger [Unknown]
  - Irritability [Unknown]
  - Restlessness [Unknown]
  - Dyspnoea [Unknown]
  - Anhedonia [Unknown]
  - Helplessness [Unknown]
  - Intentional underdose [Unknown]
  - Headache [Unknown]
  - Appetite disorder [Unknown]
  - Fear [Unknown]
  - Anxiety disorder [Unknown]
  - Feeling jittery [Unknown]
  - Sleep disorder [Unknown]
  - Hypersomnia [Unknown]
  - Decreased interest [Unknown]
  - Memory impairment [Unknown]
  - Off label use [Unknown]
  - Drug withdrawal syndrome [Unknown]
  - Depressed mood [Unknown]
  - Depression [Unknown]
  - Boredom [Unknown]
  - Affect lability [Unknown]
  - Dissociation [Unknown]
  - Muscle tightness [Unknown]
  - Drug ineffective [Unknown]
  - Fatigue [Unknown]
  - Disturbance in attention [Unknown]
